FAERS Safety Report 17442171 (Version 1)
Quarter: 2020Q1

REPORT INFORMATION
  Report Type: Spontaneous
  Country: US (occurrence: US)
  Receive Date: 20200220
  Receipt Date: 20200220
  Transmission Date: 20200409
  Serious: Yes (Hospitalization, Other)
  Sender: FDA-Public Use
  Company Number: US-BIODELIVERY SCIENCES INTERNATIONAL-2020BDSI0130

PATIENT
  Age: 50 Year
  Sex: Female
  Weight: 77.18 kg

DRUGS (6)
  1. NO DRUG NAME [Concomitant]
     Active Substance: UNSPECIFIED INGREDIENT
     Indication: HYPERTENSION
     Dosage: UNKNOWN; UNKNOWN
     Route: 048
  2. PHYTOSTEROLS NOS [Concomitant]
     Indication: BLOOD CHOLESTEROL INCREASED
     Dosage: UNKNOWN; UNKNOWN
     Route: 048
  3. BUPRENORPHINE. [Suspect]
     Active Substance: BUPRENORPHINE
     Route: 002
     Dates: start: 20200116
  4. GABAPENTIN. [Concomitant]
     Active Substance: GABAPENTIN
     Indication: PRODUCT USED FOR UNKNOWN INDICATION
     Dosage: UNKNOWN; UNKNOWN
     Route: 048
     Dates: start: 2010
  5. BUPRENORPHINE. [Suspect]
     Active Substance: BUPRENORPHINE
     Indication: PAIN
     Route: 002
     Dates: start: 2019, end: 202002
  6. GLYCYRRHIZA GLABRA/OLEA EUROPAEA/TRIGONELLA FOENUM-GRAECUM/MORUS NIGRA/MENTHA PULEGIUM [Concomitant]
     Indication: DIABETES MELLITUS
     Dosage: UNKNOWN; UNKNOWN
     Route: 065

REACTIONS (11)
  - Dizziness [Not Recovered/Not Resolved]
  - Hypertension [Not Recovered/Not Resolved]
  - Amnesia [Not Recovered/Not Resolved]
  - Chills [Not Recovered/Not Resolved]
  - Dehydration [Not Recovered/Not Resolved]
  - Feeling abnormal [Not Recovered/Not Resolved]
  - Chest pain [Not Recovered/Not Resolved]
  - Hyperhidrosis [Not Recovered/Not Resolved]
  - Pancreatitis [Not Recovered/Not Resolved]
  - Therapeutic response decreased [Unknown]
  - Weight increased [Not Recovered/Not Resolved]

NARRATIVE: CASE EVENT DATE: 2019
